FAERS Safety Report 8024305-0 (Version None)
Quarter: 2012Q1

REPORT INFORMATION
  Report Type: 
  Country: None (occurrence: None)
  Receive Date: 20120103
  Receipt Date: 20111201
  Transmission Date: 20120608
  Serious: Yes (Hospitalization)
  Sender: FDA-Public Use
  Company Number: 2011SP057423

PATIENT
  Age: 57 Year
  Sex: Female
  Weight: 70.4 kg

DRUGS (31)
  1. PEG-INTRON [Suspect]
     Indication: HEPATITIS C
     Dosage: 0.4 ML, QW, SC
     Route: 058
     Dates: start: 20110926, end: 20110926
  2. PEG-INTRON [Suspect]
     Indication: HEPATITIS C
     Dosage: 0.4 ML, QW, SC
     Route: 058
     Dates: start: 20111024, end: 20111024
  3. PEG-INTRON [Suspect]
     Indication: HEPATITIS C
     Dosage: 0.4 ML, QW, SC
     Route: 058
     Dates: start: 20111114, end: 20111114
  4. PEG-INTRON [Suspect]
     Indication: HEPATITIS C
     Dosage: 0.4 ML, QW, SC
     Route: 058
     Dates: start: 20111010, end: 20111010
  5. PEG-INTRON [Suspect]
     Indication: HEPATITIS C
     Dosage: 0.4 ML, QW, SC
     Route: 058
     Dates: start: 20111031, end: 20111031
  6. PEG-INTRON [Suspect]
     Indication: HEPATITIS C
     Dosage: 0.4 ML, QW, SC
     Route: 058
     Dates: start: 20110920, end: 20110920
  7. PEG-INTRON [Suspect]
     Indication: HEPATITIS C
     Dosage: 0.4 ML, QW, SC
     Route: 058
     Dates: start: 20111017, end: 20111017
  8. PEG-INTRON [Suspect]
     Indication: HEPATITIS C
     Dosage: 0.4 ML, QW, SC
     Route: 058
     Dates: start: 20111003, end: 20111003
  9. PEG-INTRON [Suspect]
     Indication: HEPATITIS C
     Dosage: 0.4 ML, QW, SC
     Route: 058
     Dates: start: 20111107, end: 20111107
  10. IBUPROFEN [Concomitant]
  11. IBUPROFEN [Concomitant]
  12. WELLBUTRIN XL [Concomitant]
  13. OMEPRAZOLE [Concomitant]
  14. WELLBUTRIN [Concomitant]
  15. EFFEXOR [Concomitant]
  16. LYSINE [Concomitant]
  17. REBETOL [Suspect]
     Indication: HEPATITIS C
     Dosage: 2;3 DF, QAM, PO
     Route: 048
     Dates: start: 20110920, end: 20111019
  18. REBETOL [Suspect]
     Indication: HEPATITIS C
     Dosage: 2;3 DF, QAM, PO
     Route: 048
     Dates: start: 20111020, end: 20111116
  19. REBETOL [Suspect]
     Indication: HEPATITIS C
     Dosage: 2;3 DF, QAM, PO
     Route: 048
     Dates: start: 20111117, end: 20111123
  20. REBETOL [Suspect]
     Indication: HEPATITIS C
     Dosage: 2;3 DF, QAM, PO
     Route: 048
     Dates: start: 20111124
  21. REBETOL [Suspect]
     Indication: HEPATITIS C
     Dosage: 2;3 DF, QAM, PO
     Route: 048
     Dates: start: 20111129
  22. BLINDED MK-5172 [Suspect]
     Indication: HEPATITIS C
     Dosage: 8 DF
     Dates: start: 20110920, end: 20111019
  23. BLINDED MK-5172 [Suspect]
     Indication: HEPATITIS C
     Dosage: 8 DF
     Dates: start: 20111117, end: 20111123
  24. BLINDED MK-5172 [Suspect]
     Indication: HEPATITIS C
     Dosage: 8 DF
     Dates: start: 20111020, end: 20111116
  25. BLINDED MK-5172 [Suspect]
     Indication: HEPATITIS C
     Dosage: 8 DF
     Dates: start: 20110920, end: 20110920
  26. VITAMIN B COMPLEX CAP [Concomitant]
  27. LORATADINE [Concomitant]
  28. DEPLIN [Concomitant]
  29. PLACEBO [Suspect]
     Indication: HEPATITIS C
     Dosage: 12 DF, TID, PO
     Route: 048
     Dates: start: 20111020, end: 20111116
  30. PLACEBO [Suspect]
     Indication: HEPATITIS C
     Dosage: 12 DF, TID, PO
     Route: 048
     Dates: start: 20111117, end: 20111123
  31. VALTREX [Concomitant]

REACTIONS (4)
  - DEHYDRATION [None]
  - TREMOR [None]
  - VOMITING [None]
  - ASTHENIA [None]
